FAERS Safety Report 25254675 (Version 5)
Quarter: 2025Q3

REPORT INFORMATION
  Report Type: Report from Study
  Country: EU (occurrence: EU)
  Receive Date: 20250430
  Receipt Date: 20250819
  Transmission Date: 20251021
  Serious: No
  Sender: BLUEPRINT MEDICINES
  Company Number: EU-Blueprint Medicines Corporation-2025-AER-00851

PATIENT
  Age: 71 Year
  Sex: Male
  Weight: 88.3 kg

DRUGS (14)
  1. AVAPRITINIB [Suspect]
     Active Substance: AVAPRITINIB
     Indication: Advanced systemic mastocytosis
     Route: 048
     Dates: start: 20250225, end: 20250725
  2. AVAPRITINIB [Suspect]
     Active Substance: AVAPRITINIB
     Indication: Chronic myeloid leukaemia
     Route: 048
     Dates: start: 20250726
  3. BILASTINE [Concomitant]
     Active Substance: BILASTINE
     Indication: Advanced systemic mastocytosis
     Route: 048
     Dates: start: 20250401
  4. PANTOPRAZOLE [Concomitant]
     Active Substance: PANTOPRAZOLE
     Indication: Advanced systemic mastocytosis
     Route: 048
     Dates: start: 20241231
  5. CALCIUM [Concomitant]
     Active Substance: CALCIUM
     Indication: Mineral supplementation
     Route: 048
     Dates: start: 20240704
  6. SPIRONOLACTONE [Concomitant]
     Active Substance: SPIRONOLACTONE
     Indication: Ascites
     Route: 048
     Dates: start: 20240809
  7. FUROSEMIDE [Concomitant]
     Active Substance: FUROSEMIDE
     Indication: Ascites
     Route: 048
     Dates: start: 20250131
  8. PREDNISOLONE [Concomitant]
     Active Substance: PREDNISOLONE
     Indication: Ascites
     Route: 048
     Dates: start: 20250305
  9. PREDNISOLONE [Concomitant]
     Active Substance: PREDNISOLONE
     Indication: Splenomegaly
     Route: 048
     Dates: start: 20250726
  10. ELTROMBOPAG [Concomitant]
     Active Substance: ELTROMBOPAG
     Indication: Thrombocytopenia
     Route: 048
     Dates: start: 20250423
  11. ELTROMBOPAG [Concomitant]
     Active Substance: ELTROMBOPAG
     Route: 048
     Dates: start: 20250423
  12. ELTROMBOPAG [Concomitant]
     Active Substance: ELTROMBOPAG
     Route: 048
     Dates: start: 20250502
  13. MOMETASONE [Concomitant]
     Active Substance: MOMETASONE
     Indication: Sinusitis
     Route: 045
     Dates: start: 20250311
  14. AMOXICILLIN\CLAVULANATE POTASSIUM [Concomitant]
     Active Substance: AMOXICILLIN\CLAVULANATE POTASSIUM
     Indication: Sinusitis
     Route: 065
     Dates: start: 20250311, end: 20250317

REACTIONS (5)
  - Sinusitis [Recovered/Resolved]
  - Hypogeusia [Not Recovered/Not Resolved]
  - Epistaxis [Not Recovered/Not Resolved]
  - Swelling [Unknown]
  - Anosmia [Unknown]

NARRATIVE: CASE EVENT DATE: 20250226
